FAERS Safety Report 6613572-3 (Version None)
Quarter: 2010Q1

REPORT INFORMATION
  Report Type: 
  Country: None (occurrence: None)
  Receive Date: 20100304
  Receipt Date: 20100222
  Transmission Date: 20100710
  Serious: Yes (Hospitalization)
  Sender: FDA-Public Use
  Company Number: IL-ROCHE-671242

PATIENT
  Sex: Female
  Weight: 82 kg

DRUGS (13)
  1. CAPECITABINE [Suspect]
     Indication: RECTAL CANCER
     Dosage: DOSE: ON DAY 1-DAY 15 OF 3 WEEK CYCLE; TOTAL DOSE GIVEN 500 MG
     Route: 048
     Dates: start: 20090712
  2. CAPECITABINE [Suspect]
     Route: 048
  3. CAPECITABINE [Suspect]
     Dosage: DATE OF THE LAST DOSE: 22 NOVEMBER 2009
     Route: 048
  4. CAPECITABINE [Suspect]
     Dosage: REDUCED DOSE.
     Route: 048
  5. OXALIPLATIN [Suspect]
     Indication: RECTAL CANCER
     Dosage: FREQUENCY: ON D1, 8, 15, 22 AND 29
     Route: 042
     Dates: start: 20090712
  6. OXALIPLATIN [Suspect]
     Dosage: REDUCED DOSE.
     Route: 042
  7. MICROPIRIN [Concomitant]
     Dosage: DOSE: 75 MG/D
  8. CADEX [Concomitant]
     Dosage: DOSE: 20 MG/D
  9. LOSEC [Concomitant]
     Dosage: DOSE: 20 MG/D
  10. NORMALOL [Concomitant]
  11. VASODIP [Concomitant]
     Dosage: DOSE: 5 MG/D
  12. GLUCOPHAGE [Concomitant]
  13. ENALAPRIL MALEATE [Concomitant]

REACTIONS (3)
  - DIARRHOEA [None]
  - HYPONATRAEMIA [None]
  - RENAL FAILURE [None]
